FAERS Safety Report 13715824 (Version 1)
Quarter: 2017Q3

REPORT INFORMATION
  Report Type: Spontaneous
  Country: US (occurrence: US)
  Receive Date: 20170705
  Receipt Date: 20170705
  Transmission Date: 20171127
  Serious: No
  Sender: FDA-Public Use
  Company Number: US-HORIZON-PRO-0036-2017

PATIENT
  Age: 26 Year
  Sex: Female

DRUGS (1)
  1. PROCYSBI DELAYED-RELEASE [Suspect]
     Active Substance: CYSTEAMINE BITARTRATE
     Indication: CYSTINOSIS
     Dosage: 600 MG EVERY 12 HOURS, CURRENTLY DOSE TITRATING DOWN
     Route: 048
     Dates: start: 20170627

REACTIONS (1)
  - Fatigue [Unknown]

NARRATIVE: CASE EVENT DATE: 20170627
